FAERS Safety Report 9830237 (Version 1)
Quarter: 2014Q1

REPORT INFORMATION
  Report Type: Report from Study
  Country: DE (occurrence: TR)
  Receive Date: 20140120
  Receipt Date: 20140120
  Transmission Date: 20141002
  Serious: Yes (Hospitalization)
  Sender: FDA-Public Use
  Company Number: DE-ACTELION-A-NJ2014-93868

PATIENT
  Age: 47 Year
  Sex: Male

DRUGS (2)
  1. VENTAVIS [Suspect]
     Indication: PRODUCT USED FOR UNKNOWN INDICATION
     Dosage: UNK
     Route: 055
     Dates: start: 20130607, end: 201309
  2. VENTAVIS [Suspect]
     Dosage: UNK
     Route: 055
     Dates: start: 201310, end: 20131030

REACTIONS (5)
  - White blood cell count decreased [Not Recovered/Not Resolved]
  - Somnolence [Recovered/Resolved]
  - Nasal obstruction [Not Recovered/Not Resolved]
  - Hypotension [Not Recovered/Not Resolved]
  - Back pain [Recovered/Resolved]
